FAERS Safety Report 5806734-6 (Version None)
Quarter: 2008Q3

REPORT INFORMATION
  Report Type: 
  Country: None (occurrence: None)
  Receive Date: 20080709
  Receipt Date: 20080709
  Transmission Date: 20090109
  Serious: Yes (Hospitalization)
  Sender: FDA-Public Use
  Company Number: None

PATIENT
  Age: 50 Year
  Sex: Male
  Weight: 102.0593 kg

DRUGS (1)
  1. AVELOX [Suspect]
     Indication: EAR INFECTION
     Dosage: 1 PER DAY PO, 1 TIME ONLY
     Route: 048
     Dates: start: 20080606, end: 20080606

REACTIONS (6)
  - DYSPNOEA [None]
  - GENERAL PHYSICAL HEALTH DETERIORATION [None]
  - PARAESTHESIA [None]
  - RASH [None]
  - SKIN BURNING SENSATION [None]
  - SWOLLEN TONGUE [None]
